FAERS Safety Report 11333822 (Version 1)
Quarter: 2015Q3

REPORT INFORMATION
  Report Type: Spontaneous
  Country: US (occurrence: US)
  Receive Date: 20150803
  Receipt Date: 20150803
  Transmission Date: 20151125
  Serious: No
  Sender: FDA-Public Use
  Company Number: US-ELI_LILLY_AND_COMPANY-US200901003592

PATIENT
  Age: 55 Year
  Sex: Female
  Weight: 58.5 kg

DRUGS (5)
  1. ZYPREXA [Suspect]
     Active Substance: OLANZAPINE
     Indication: PARANOIA
     Dosage: 5 MG, EACH MORNING
     Dates: start: 20040204
  2. TRAZODONE [Concomitant]
     Active Substance: TRAZODONE HYDROCHLORIDE
     Dosage: 300 MG, UNK
     Dates: start: 1998
  3. ZOLPIDEM [Concomitant]
     Active Substance: ZOLPIDEM\ZOLPIDEM TARTRATE
     Dosage: 12.5 MG, EACH EVENING
  4. SEROQUEL [Concomitant]
     Active Substance: QUETIAPINE FUMARATE
     Dosage: 300 MG, EACH EVENING
     Dates: start: 2007
  5. XANAX [Concomitant]
     Active Substance: ALPRAZOLAM
     Dosage: 1.25 MG, DAILY (1/D)

REACTIONS (3)
  - Metabolic syndrome [Unknown]
  - Blood glucose increased [Unknown]
  - Weight increased [Unknown]

NARRATIVE: CASE EVENT DATE: 200901
